FAERS Safety Report 8296702-X (Version None)
Quarter: 2012Q2

REPORT INFORMATION
  Report Type: 
  Country: None (occurrence: None)
  Receive Date: 20120418
  Receipt Date: 20120402
  Transmission Date: 20120825
  Serious: Yes (Other)
  Sender: FDA-Public Use
  Company Number: ES-BAXTER-2012BH007303

PATIENT
  Age: 38 Year
  Sex: Male

DRUGS (2)
  1. EXTRANEAL [Suspect]
     Route: 033
     Dates: start: 20120123, end: 20120301
  2. EXTRANEAL [Suspect]
     Route: 033
     Dates: start: 20120216, end: 20120101

REACTIONS (1)
  - NONINFECTIOUS PERITONITIS [None]
